FAERS Safety Report 7650806-0 (Version None)
Quarter: 2011Q3

REPORT INFORMATION
  Report Type: 
  Country: None (occurrence: None)
  Receive Date: 20110802
  Receipt Date: 20110726
  Transmission Date: 20111222
  Serious: Yes (Other)
  Sender: FDA-Public Use
  Company Number: JP-MERCK-1107USA03885

PATIENT
  Age: 60 Year
  Sex: Female
  Weight: 54 kg

DRUGS (8)
  1. DECADRON [Suspect]
     Indication: ALLERGY PROPHYLAXIS
     Route: 048
     Dates: start: 20110409, end: 20110411
  2. EPIRUBICIN HYDROCHLORIDE [Suspect]
     Route: 042
     Dates: start: 20110101
  3. EMEND [Concomitant]
     Route: 048
  4. DECADRON PHOSPHATE [Concomitant]
     Route: 065
  5. FLUOROURACIL [Suspect]
     Route: 042
     Dates: start: 20110101
  6. PRIMPERAN TAB [Concomitant]
     Route: 065
  7. CYCLOPHOSPHAMIDE [Suspect]
     Route: 042
     Dates: start: 20110101
  8. ALOXI [Concomitant]
     Route: 042

REACTIONS (4)
  - NAIL DISCOLOURATION [None]
  - DEPRESSION [None]
  - OEDEMA PERIPHERAL [None]
  - HOT FLUSH [None]
